FAERS Safety Report 9148775 (Version 1)
Quarter: 2013Q1

REPORT INFORMATION
  Report Type: Spontaneous
  Country: IN (occurrence: None)
  Receive Date: 20130211
  Receipt Date: 20130211
  Transmission Date: 20140127
  Serious: Yes (Death, Hospitalization, Other)
  Sender: FDA-Public Use
  Company Number: 2013PI001851

PATIENT
  Age: 31 Year
  Sex: Male

DRUGS (2)
  1. ISONIAZID [Suspect]
  2. RIFAMPICIN [Suspect]

REACTIONS (19)
  - Vomiting [None]
  - Depressed level of consciousness [None]
  - Grand mal convulsion [None]
  - Shock [None]
  - Respiratory distress [None]
  - Coma [None]
  - Chromaturia [None]
  - Metabolic acidosis [None]
  - Lactic acidosis [None]
  - Rhabdomyolysis [None]
  - Renal impairment [None]
  - Hepatic function abnormal [None]
  - Poisoning [None]
  - Prothrombin time prolonged [None]
  - Activated partial thromboplastin time prolonged [None]
  - Blood bilirubin increased [None]
  - Aspartate aminotransferase increased [None]
  - Blood alkaline phosphatase increased [None]
  - Peritoneal dialysis [None]
